FAERS Safety Report 5761158-5 (Version None)
Quarter: 2008Q2

REPORT INFORMATION
  Report Type: 
  Country: None (occurrence: None)
  Receive Date: 20080606
  Receipt Date: 20080603
  Transmission Date: 20081010
  Serious: Yes (Other)
  Sender: FDA-Public Use
  Company Number: B0509006B

PATIENT
  Age: 71 Year
  Sex: Female

DRUGS (2)
  1. TYVERB [Suspect]
     Indication: BREAST CANCER METASTATIC
     Dosage: 1250MG PER DAY
     Route: 048
     Dates: start: 20080107, end: 20080418
  2. XELODA [Suspect]
     Indication: BREAST CANCER METASTATIC
     Dosage: 1500MGM2 PER DAY
     Route: 065
     Dates: start: 20080107

REACTIONS (5)
  - DEHYDRATION [None]
  - DIARRHOEA [None]
  - GENERAL PHYSICAL HEALTH DETERIORATION [None]
  - MALNUTRITION [None]
  - RASH PRURITIC [None]
